FAERS Safety Report 4811855-0 (Version None)
Quarter: 2005Q4

REPORT INFORMATION
  Report Type: 
  Country: None (occurrence: None)
  Receive Date: 20051026
  Receipt Date: 20051011
  Transmission Date: 20060501
  Serious: Yes (Other)
  Sender: FDA-Public Use
  Company Number: S05-USA-04663-01

PATIENT
  Age: 27 Year
  Sex: Female

DRUGS (3)
  1. CELEXA [Suspect]
     Indication: PANIC ATTACK
     Dosage: 10 MG QD PO
     Route: 048
     Dates: start: 20051008, end: 20051009
  2. CELEXA [Suspect]
     Indication: PANIC ATTACK
     Dosage: 5 MG QD PO
     Route: 048
     Dates: start: 20051010
  3. XANAX [Concomitant]

REACTIONS (13)
  - ACTIVITIES OF DAILY LIVING IMPAIRED [None]
  - ANOREXIA [None]
  - ASTHENIA [None]
  - BLEPHAROSPASM [None]
  - CONDITION AGGRAVATED [None]
  - DIARRHOEA [None]
  - FEELING ABNORMAL [None]
  - HOT FLUSH [None]
  - HYPERHIDROSIS [None]
  - INSOMNIA [None]
  - PANIC ATTACK [None]
  - TREMOR [None]
  - WEIGHT DECREASED [None]
